FAERS Safety Report 5903450-7 (Version None)
Quarter: 2008Q3

REPORT INFORMATION
  Report Type: 
  Country: None (occurrence: None)
  Receive Date: 20080930
  Receipt Date: 20080918
  Transmission Date: 20090109
  Serious: Yes (Hospitalization)
  Sender: FDA-Public Use
  Company Number: SE-ROCHE-583372

PATIENT
  Age: 53 Year
  Sex: Male

DRUGS (8)
  1. CELLCEPT [Suspect]
     Indication: DRUG USE FOR UNKNOWN INDICATION
     Dosage: FORM REPORTED AS CAPSULE, HARD
     Route: 065
     Dates: start: 20040401, end: 20070926
  2. SELOKEN [Concomitant]
     Dosage: DRUG NAME REPORTED: SELOKEN ZOC, REPORTED: PROL REL TABL
  3. ZYLORIC [Concomitant]
  4. PREDNISOLON [Concomitant]
  5. NATRIUMBIKARBONAT [Concomitant]
  6. KALIUM RETARD [Concomitant]
     Dosage: REPORTED: PROL REL TABL
  7. FUROSEMID [Concomitant]
  8. CAPTOPRIL [Concomitant]

REACTIONS (3)
  - LEUKOPENIA [None]
  - VIRAL INFECTION [None]
  - WHITE BLOOD CELL DISORDER [None]
